FAERS Safety Report 11281878 (Version 2)
Quarter: 2015Q3

REPORT INFORMATION
  Report Type: Spontaneous
  Country: US (occurrence: US)
  Receive Date: 20150717
  Receipt Date: 20150720
  Transmission Date: 20151125
  Serious: Yes (Other)
  Sender: FDA-Public Use
  Company Number: US-ASTRAZENECA-2006BM03236

PATIENT
  Age: 56 Year
  Sex: Female
  Weight: 102.1 kg

DRUGS (7)
  1. BYETTA [Suspect]
     Active Substance: EXENATIDE
     Indication: TYPE 2 DIABETES MELLITUS
     Route: 058
     Dates: start: 200511, end: 200602
  2. GLUCOPHAGE ^BRISTOL-MYERS SQUIBB^ [Concomitant]
     Route: 048
  3. BYETTA [Suspect]
     Active Substance: EXENATIDE
     Indication: TYPE 2 DIABETES MELLITUS
     Route: 058
     Dates: start: 200602
  4. BYDUREON [Suspect]
     Active Substance: EXENATIDE
     Indication: TYPE 2 DIABETES MELLITUS
     Route: 058
     Dates: start: 200511, end: 200602
  5. BYDUREON [Suspect]
     Active Substance: EXENATIDE
     Indication: TYPE 2 DIABETES MELLITUS
     Route: 058
     Dates: start: 200602
  6. PRANDIN ^NOVO NORDISK^ [Concomitant]
     Dosage: UNK
     Dates: end: 20060220
  7. HUMALOG MIX [Concomitant]
     Active Substance: INSULIN LISPRO
     Route: 058

REACTIONS (18)
  - Muscle spasms [Not Recovered/Not Resolved]
  - Dyspnoea [Not Recovered/Not Resolved]
  - Peripheral swelling [Not Recovered/Not Resolved]
  - Abdominal distension [Not Recovered/Not Resolved]
  - Diarrhoea [Not Recovered/Not Resolved]
  - Blood glucose increased [Unknown]
  - Dyspepsia [Not Recovered/Not Resolved]
  - Aphonia [Not Recovered/Not Resolved]
  - Nausea [Recovered/Resolved]
  - Renal failure [Unknown]
  - Weight fluctuation [Unknown]
  - Dysphagia [Unknown]
  - Dizziness [Recovered/Resolved]
  - Blood triglycerides increased [Unknown]
  - Dyspepsia [Recovered/Resolved]
  - Decreased appetite [Not Recovered/Not Resolved]
  - Fatigue [Not Recovered/Not Resolved]
  - Product quality issue [Unknown]

NARRATIVE: CASE EVENT DATE: 200511
